FAERS Safety Report 12717810 (Version 1)
Quarter: 2016Q3

REPORT INFORMATION
  Report Type: Spontaneous
  Country: GB (occurrence: GB)
  Receive Date: 20160906
  Receipt Date: 20160906
  Transmission Date: 20161109
  Serious: Yes (Other)
  Sender: FDA-Public Use
  Company Number: GB-PFIZER INC-2016410208

PATIENT
  Age: 24 Year
  Sex: Male
  Weight: 67 kg

DRUGS (17)
  1. AMITRIPTYLINE HYDROCHLORIDE. [Concomitant]
     Active Substance: AMITRIPTYLINE HYDROCHLORIDE
     Indication: PAIN
     Dosage: EVENING
     Dates: start: 20160225, end: 20160729
  2. NEORAL [Concomitant]
     Active Substance: CYCLOSPORINE
     Dates: start: 20160419, end: 20160729
  3. EPADERM [Concomitant]
     Active Substance: MINERAL OIL\PETROLATUM\WAX, EMULSIFYING
     Dosage: USE AS DIRECTED
     Dates: start: 20160225
  4. ZOPICLONE [Concomitant]
     Active Substance: ZOPICLONE
     Dosage: AT NIGHT
     Dates: start: 20160729
  5. EMOLLIN [Concomitant]
     Dosage: USE AS DIRECTED
     Dates: start: 20160225
  6. FOLIC ACID. [Concomitant]
     Active Substance: FOLIC ACID
     Dosage: FRIDAY AND SUNDAY
     Dates: start: 20160729
  7. UREA. [Concomitant]
     Active Substance: UREA
     Dosage: 1 DF, 2X/DAY
     Dates: start: 20160225, end: 20160729
  8. CALCIPOTRIOL [Concomitant]
     Active Substance: CALCIPOTRIENE
     Dosage: 12HRS AFTER DOVOBET TO RED/PINK ...
     Dates: start: 20160225, end: 20160729
  9. ALLOPURINOL. [Concomitant]
     Active Substance: ALLOPURINOL
     Dosage: 1 DF, 1X/DAY
     Dates: start: 20160803
  10. GABAPENTIN. [Concomitant]
     Active Substance: GABAPENTIN
     Dosage: 1 DF, 2X/DAY
     Dates: start: 20160225, end: 20160729
  11. HYDROXYZINE [Concomitant]
     Active Substance: HYDROXYZINE\HYDROXYZINE HYDROCHLORIDE
     Dosage: 1 DF, 1X/DAY
     Dates: start: 20160225
  12. MOMETASONE [Concomitant]
     Active Substance: MOMETASONE
     Dosage: FOR UPTO 2WKS AT A TIME, AS ADVISE...
     Dates: start: 20160419
  13. METHOTREXATE SODIUM. [Suspect]
     Active Substance: METHOTREXATE SODIUM
     Dosage: UNK
     Dates: start: 20160729
  14. COAL TAR. [Concomitant]
     Active Substance: COAL TAR
     Dosage: APPLY 2-3 TIMES/DAY
     Dates: start: 20160225, end: 20160729
  15. DERMOL /01330701/ [Concomitant]
     Dosage: USE AS DIRECTED
     Dates: start: 20160225
  16. DIAZEPAM. [Concomitant]
     Active Substance: DIAZEPAM
     Dates: start: 20160819
  17. NAPROXEN. [Concomitant]
     Active Substance: NAPROXEN
     Dosage: 1 DF, 2X/DAY
     Dates: start: 20160225

REACTIONS (4)
  - Fatigue [Unknown]
  - Anxiety [Unknown]
  - Panic attack [Unknown]
  - Paranoia [Unknown]

NARRATIVE: CASE EVENT DATE: 20160819
